FAERS Safety Report 6896619-9 (Version None)
Quarter: 2010Q3

REPORT INFORMATION
  Report Type: 
  Country: None (occurrence: None)
  Receive Date: 20100802
  Receipt Date: 20070118
  Transmission Date: 20110219
  Serious: Yes (Other)
  Sender: FDA-Public Use
  Company Number: US-PFIZER INC-2006120353

PATIENT
  Sex: Male
  Weight: 104.3 kg

DRUGS (6)
  1. LYRICA [Suspect]
     Indication: NEURALGIA
     Route: 048
     Dates: start: 20060718
  2. TAXOTERE [Concomitant]
  3. PROCRIT [Concomitant]
  4. OXYCONTIN [Concomitant]
     Route: 048
  5. DILAUDID [Concomitant]
     Dosage: EVERY 4 HOURS AS NEEDED
  6. WARFARIN SODIUM [Concomitant]
     Route: 048

REACTIONS (1)
  - URINARY RETENTION [None]
